FAERS Safety Report 17752860 (Version 3)
Quarter: 2021Q1

REPORT INFORMATION
  Report Type: Spontaneous
  Country: GB (occurrence: GB)
  Receive Date: 20200506
  Receipt Date: 20210304
  Transmission Date: 20210419
  Serious: Yes (Other)
  Sender: FDA-Public Use
  Company Number: GB-MYLANLABS-2020M1045174

PATIENT
  Age: 86 Year
  Sex: Male

DRUGS (9)
  1. ZOPICLONE [Concomitant]
     Active Substance: ZOPICLONE
     Indication: INSOMNIA
     Dosage: 3.75 MILLIGRAM, PRN (AT NIGHT)
     Route: 048
     Dates: start: 20191210, end: 20191215
  2. AMIODARONE [Concomitant]
     Active Substance: AMIODARONE
     Dosage: 600 MILLIGRAM, QD
     Route: 048
     Dates: start: 20191211, end: 20191215
  3. BUMETANIDE. [Suspect]
     Active Substance: BUMETANIDE
     Indication: PRODUCT USED FOR UNKNOWN INDICATION
     Dosage: 3 MILLIGRAM, QD (2MG AM AND 1MG PM)
     Route: 048
  4. FUROSEMIDE. [Suspect]
     Active Substance: FUROSEMIDE
     Indication: PRODUCT USED FOR UNKNOWN INDICATION
     Dosage: 160 MILLIGRAM, QD
     Route: 042
  5. BUMETANIDE. [Suspect]
     Active Substance: BUMETANIDE
     Dosage: 3MG, QD (2MG GIVN AT 8AM 10/12/2019, 1MG AT 1PM 11/12, 2MG AT 8AM 12/12, 1MG NOT GVN AT 1PM 12/12)
     Route: 048
     Dates: start: 20191209, end: 20191212
  6. FUROSEMIDE. [Suspect]
     Active Substance: FUROSEMIDE
     Dosage: 160 MILLIGRAM, QD
     Route: 042
     Dates: start: 20191211, end: 20191212
  7. OXYGEN. [Concomitant]
     Active Substance: OXYGEN
     Indication: PRODUCT USED FOR UNKNOWN INDICATION
     Dosage: UNK
     Dates: start: 20191209, end: 20191215
  8. NYSTATIN. [Concomitant]
     Active Substance: NYSTATIN
     Indication: ORAL CANDIDIASIS
     Dosage: 4 MILLILITER, QD (IN THE MORNING)
     Route: 048
     Dates: start: 20191208, end: 20191215
  9. APIXABAN [Concomitant]
     Active Substance: APIXABAN
     Indication: ATRIAL FIBRILLATION
     Dosage: 2.5 MILLIGRAM, QD (IN THE MORNING)
     Dates: start: 20191209, end: 20191215

REACTIONS (2)
  - Acute kidney injury [Unknown]
  - Product prescribing error [Unknown]

NARRATIVE: CASE EVENT DATE: 20191212
